FAERS Safety Report 6278960-6 (Version None)
Quarter: 2009Q3

REPORT INFORMATION
  Report Type: 
  Country: None (occurrence: None)
  Receive Date: 20090723
  Receipt Date: 20090716
  Transmission Date: 20100115
  Serious: Yes (Hospitalization, Other)
  Sender: FDA-Public Use
  Company Number: BR-ELI_LILLY_AND_COMPANY-BR200907003617

PATIENT
  Sex: Male
  Weight: 61 kg

DRUGS (7)
  1. HUMALOG MIX 75/25 [Suspect]
     Indication: DIABETES MELLITUS
     Dosage: UNK, UNKNOWN
     Route: 058
     Dates: start: 20050101
  2. HUMALOG MIX 50/50 [Suspect]
     Indication: DIABETES MELLITUS
     Dosage: UNK, UNKNOWN
     Route: 058
     Dates: start: 20050101
  3. HUMALOG [Suspect]
     Indication: DIABETES MELLITUS
     Dosage: UNK, UNKNOWN
     Route: 058
     Dates: start: 20050101
  4. CARBIDOPA + LEVODOPA [Concomitant]
     Dosage: UNK, UNKNOWN
     Route: 065
  5. TRIVASTAL [Concomitant]
     Dosage: 50 MG, UNKNOWN
     Route: 065
  6. BENICAR [Concomitant]
     Indication: HYPERTENSION
     Dosage: 20 MG, UNKNOWN
     Route: 065
  7. LANTUS [Concomitant]
     Dosage: UNK, UNKNOWN
     Route: 065

REACTIONS (4)
  - BACTERAEMIA [None]
  - BLOOD GLUCOSE INCREASED [None]
  - BLOOD SODIUM DECREASED [None]
  - EXPIRED DRUG ADMINISTERED [None]
